FAERS Safety Report 10687050 (Version 1)
Quarter: 2015Q1

REPORT INFORMATION
  Report Type: Spontaneous
  Country: US (occurrence: US)
  Receive Date: 20150102
  Receipt Date: 20150102
  Transmission Date: 20150720
  Serious: No
  Sender: FDA-Public Use
  Company Number: US-BIOGENIDEC-2014BI139096

PATIENT
  Age: 49 Year
  Sex: Female

DRUGS (2)
  1. AMPYRA [Concomitant]
     Active Substance: DALFAMPRIDINE
     Indication: MULTIPLE SCLEROSIS
     Dates: start: 20100405
  2. TYSABRI [Suspect]
     Active Substance: NATALIZUMAB
     Indication: MULTIPLE SCLEROSIS
     Route: 042
     Dates: start: 20100405

REACTIONS (8)
  - Depression [Not Recovered/Not Resolved]
  - Nasopharyngitis [Recovered/Resolved]
  - Limb injury [Recovered/Resolved]
  - Multiple sclerosis relapse [Recovered/Resolved]
  - Memory impairment [Not Recovered/Not Resolved]
  - Drug dose omission [Unknown]
  - Fear [Not Recovered/Not Resolved]
  - Gait disturbance [Unknown]

NARRATIVE: CASE EVENT DATE: 201411
